FAERS Safety Report 9282077 (Version 1)
Quarter: 2013Q2

REPORT INFORMATION
  Report Type: Spontaneous
  Country: US (occurrence: None)
  Receive Date: 20130508
  Receipt Date: 20130508
  Transmission Date: 20140414
  Serious: No
  Sender: FDA-Public Use
  Company Number: None

PATIENT
  Age: 50 Year
  Sex: Female

DRUGS (1)
  1. DESMOPRESSIN 0.2MG [Suspect]
     Dosage: AT BEDTIME
     Route: 048

REACTIONS (1)
  - Hyponatraemia [None]
